FAERS Safety Report 10005319 (Version 3)
Quarter: 2014Q2

REPORT INFORMATION
  Report Type: Spontaneous
  Country: JP (occurrence: JP)
  Receive Date: 20140313
  Receipt Date: 20140410
  Transmission Date: 20141212
  Serious: Yes (Hospitalization)
  Sender: FDA-Public Use
  Company Number: JP-009507513-1402JPN011722

PATIENT
  Age: 56 Year
  Sex: Female

DRUGS (2)
  1. TEMODAL [Suspect]
     Indication: MALIGNANT GLIOMA
     Dosage: 140 MG, QD
     Route: 048
     Dates: start: 20140121, end: 20140304
  2. BAKTAR [Concomitant]
     Dosage: UNK
     Dates: start: 20140121

REACTIONS (1)
  - Drug eruption [Recovering/Resolving]
